FAERS Safety Report 6051188-0 (Version None)
Quarter: 2009Q1

REPORT INFORMATION
  Report Type: 
  Country: None (occurrence: None)
  Receive Date: 20090126
  Receipt Date: 20090119
  Transmission Date: 20090719
  Serious: Yes (Hospitalization)
  Sender: FDA-Public Use
  Company Number: US-ABBOTT-09P-163-0498843-00

PATIENT
  Sex: Male
  Weight: 81.72 kg

DRUGS (8)
  1. HUMIRA [Suspect]
     Indication: PSORIASIS
     Route: 058
     Dates: start: 20080101, end: 20080301
  2. HUMIRA [Suspect]
     Route: 058
     Dates: end: 20090101
  3. HUMIRA [Suspect]
     Route: 058
     Dates: start: 20090101
  4. VALTREX [Concomitant]
     Indication: GENITAL HERPES
     Route: 048
  5. NEXIUM [Concomitant]
     Indication: GASTROOESOPHAGEAL REFLUX DISEASE
     Route: 048
  6. CHANTIX [Concomitant]
     Indication: EX-TOBACCO USER
     Route: 048
     Dates: start: 20081101
  7. COMBIVENT [Concomitant]
     Indication: ASTHMA
     Dosage: 2 PUFFS
     Route: 055
  8. ADVAIR DISKUS 100/50 [Concomitant]
     Indication: ASTHMA
     Dosage: 250/50
     Route: 055

REACTIONS (2)
  - INTERVERTEBRAL DISC PROTRUSION [None]
  - PSORIASIS [None]
